FAERS Safety Report 13581354 (Version 4)
Quarter: 2017Q3

REPORT INFORMATION
  Report Type: Spontaneous
  Country: US (occurrence: US)
  Receive Date: 20170525
  Receipt Date: 20170809
  Transmission Date: 20171127
  Serious: Yes (Hospitalization)
  Sender: FDA-Public Use
  Company Number: US-GLAXOSMITHKLINE-US2017GSK078237

PATIENT
  Age: 90 Year
  Sex: Female

DRUGS (5)
  1. FAMOTIDINE. [Concomitant]
     Active Substance: FAMOTIDINE
  2. COLESTIPOL [Concomitant]
     Active Substance: COLESTIPOL
  3. VITAMIN B12 [Concomitant]
     Active Substance: CYANOCOBALAMIN
  4. LYRICA [Concomitant]
     Active Substance: PREGABALIN
  5. BREO ELLIPTA [Suspect]
     Active Substance: FLUTICASONE FUROATE\VILANTEROL TRIFENATATE
     Indication: COUGH
     Dosage: 1 PUFF(S), 1D
     Route: 055
     Dates: start: 2016, end: 201610

REACTIONS (15)
  - Oral candidiasis [Unknown]
  - Throat irritation [Recovering/Resolving]
  - Paraesthesia oral [Unknown]
  - Respiratory tract irritation [Recovering/Resolving]
  - Burning sensation [Recovering/Resolving]
  - Wrong technique in product usage process [Recovered/Resolved]
  - Weight decreased [Unknown]
  - Underdose [Recovered/Resolved]
  - Ill-defined disorder [Recovering/Resolving]
  - Device use error [Recovered/Resolved]
  - Trigeminal neuralgia [Unknown]
  - Hypoaesthesia oral [Unknown]
  - Decreased appetite [Unknown]
  - Cough [Recovering/Resolving]
  - Oral discomfort [Recovering/Resolving]

NARRATIVE: CASE EVENT DATE: 201610
